FAERS Safety Report 12721941 (Version 1)
Quarter: 2016Q3

REPORT INFORMATION
  Report Type: Spontaneous
  Country: CZ (occurrence: CZ)
  Receive Date: 20160907
  Receipt Date: 20160907
  Transmission Date: 20161109
  Serious: Yes (Hospitalization)
  Sender: FDA-Public Use
  Company Number: CZ-TEVA-688919ISR

PATIENT
  Age: 73 Year
  Sex: Female
  Weight: 47 kg

DRUGS (7)
  1. AMILORIDE W/HYDROCHLOROTHIAZIDE [Suspect]
     Active Substance: AMLODIPINE\HYDROCHLOROTHIAZIDE\OLMESARTAN
     Indication: HYPERTENSION
     Dosage: TOOK FOR SEVERAL YEARS
     Route: 065
     Dates: start: 2006
  2. ASPIRIN. [Concomitant]
     Active Substance: ASPIRIN
     Dosage: 100 MILLIGRAM DAILY; 100 MG/DAY
     Route: 065
  3. LACIDIPINE [Concomitant]
     Active Substance: LACIDIPINE
     Dosage: 4 MG IN THE MORNING AND 2 MG IN THE EVENING
     Route: 065
  4. TRAZODONE [Suspect]
     Active Substance: TRAZODONE HYDROCHLORIDE
     Indication: ANTIDEPRESSANT THERAPY
     Dosage: 150 MILLIGRAM DAILY; 150 MG/DAY
     Route: 065
  5. PERINDOPRIL/INDAPAMIDE [Suspect]
     Active Substance: INDAPAMIDE\PERINDOPRIL
     Indication: HYPERTENSION
     Dosage: 4/1.25 MG DAILY FOR ABOUT 5 YEARS
     Route: 065
  6. ACEBUTOLOL [Concomitant]
     Active Substance: ACEBUTOLOL
     Dosage: 800 MILLIGRAM DAILY; 400 MG TWO TIMES A DAY
     Route: 065
  7. IBANDRONIC ACID [Concomitant]
     Active Substance: IBANDRONIC ACID
     Indication: OSTEOPOROSIS
     Dosage: REGULARLY
     Route: 065

REACTIONS (7)
  - Respiratory alkalosis [Recovered/Resolved]
  - Osteoporosis [Not Recovered/Not Resolved]
  - Pelvic fracture [Unknown]
  - Humerus fracture [Unknown]
  - Dyspepsia [Recovered/Resolved]
  - Wrist fracture [Unknown]
  - Hyponatraemia [Recovered/Resolved]
